FAERS Safety Report 7270296-X (Version None)
Quarter: 2011Q1

REPORT INFORMATION
  Report Type: 
  Country: None (occurrence: None)
  Receive Date: 20110202
  Receipt Date: 20110125
  Transmission Date: 20110831
  Serious: Yes (Life-Threatening)
  Sender: FDA-Public Use
  Company Number: FI-TEVA-264726ISR

PATIENT
  Sex: Male

DRUGS (7)
  1. FLUOXETINE [Concomitant]
     Indication: DEPRESSION
     Route: 048
  2. BACLOFEN [Suspect]
     Route: 048
  3. TIZANIDINE HYDROCHLORIDE [Concomitant]
     Indication: MULTIPLE SCLEROSIS
     Route: 048
  4. COPAXONE [Suspect]
     Route: 058
     Dates: start: 20050101
  5. COPAXONE [Suspect]
     Indication: MULTIPLE SCLEROSIS
     Route: 058
     Dates: start: 20080801, end: 20101230
  6. BISOPROLOL [Concomitant]
     Indication: PALPITATIONS
     Route: 048
  7. AMANTADINE HCL [Concomitant]
     Indication: FATIGUE
     Route: 048

REACTIONS (9)
  - GRANULOMATOUS LIVER DISEASE [None]
  - CHEST DISCOMFORT [None]
  - PHARYNGEAL OEDEMA [None]
  - HEPATIC ENZYME INCREASED [None]
  - URTICARIA [None]
  - MALAISE [None]
  - PYREXIA [None]
  - DYSPHONIA [None]
  - RASH PRURITIC [None]
